FAERS Safety Report 6388373-4 (Version None)
Quarter: 2009Q4

REPORT INFORMATION
  Report Type: 
  Country: None (occurrence: None)
  Receive Date: 20091005
  Receipt Date: 20090928
  Transmission Date: 20100525
  Serious: Yes (Other)
  Sender: FDA-Public Use
  Company Number: US-ELI_LILLY_AND_COMPANY-US200909006644

PATIENT
  Sex: Female

DRUGS (12)
  1. BYETTA [Suspect]
     Dosage: UNK, UNKNOWN
     Route: 058
  2. HUMALOG [Concomitant]
     Dosage: UNK, UNKNOWN
  3. LEVEMIR [Concomitant]
     Dosage: UNK, UNKNOWN
  4. CARDIZEM [Concomitant]
     Dosage: UNK, UNKNOWN
  5. HYZAAR [Concomitant]
     Dosage: UNK, UNKNOWN
  6. KLONOPIN [Concomitant]
     Dosage: UNK, UNKNOWN
  7. PROTONIX [Concomitant]
     Dosage: UNK, UNKNOWN
  8. POTASSIUM CHLORIDE [Concomitant]
     Dosage: UNK, UNKNOWN
  9. JANUVIA [Concomitant]
     Dosage: UNK, UNKNOWN
  10. BLEPH [Concomitant]
     Dosage: UNK, UNKNOWN
  11. MURO 128 [Concomitant]
     Dosage: UNK, UNKNOWN
  12. TOPROL-XL [Concomitant]
     Dosage: UNK, UNKNOWN

REACTIONS (4)
  - CATARACT [None]
  - CORRECTIVE LENS USER [None]
  - FUCHS' SYNDROME [None]
  - OFF LABEL USE [None]
